FAERS Safety Report 4367598-3 (Version None)
Quarter: 2004Q2

REPORT INFORMATION
  Report Type: 
  Country: None (occurrence: None)
  Receive Date: 20040526
  Receipt Date: 20040312
  Transmission Date: 20050107
  Serious: No
  Sender: FDA-Public Use
  Company Number: 2004US002064

PATIENT

DRUGS (5)
  1. ALOXI [Suspect]
     Indication: PROPHYLAXIS OF NAUSEA AND VOMITING
     Dosage: INTRAVENOUS
     Route: 042
     Dates: start: 20040101, end: 20040101
  2. DEXAMETHASONE [Concomitant]
  3. ADRIAMYCIN PFS [Concomitant]
  4. VINBLASTINE SULFATE [Concomitant]
  5. DACARBAZINE [Concomitant]

REACTIONS (1)
  - EYE SWELLING [None]
